APPROVED DRUG PRODUCT: PRAMIPEXOLE DIHYDROCHLORIDE
Active Ingredient: PRAMIPEXOLE DIHYDROCHLORIDE
Strength: 0.75MG
Dosage Form/Route: TABLET, EXTENDED RELEASE;ORAL
Application: A213444 | Product #002 | TE Code: AB
Applicant: NOVAST LABORATORIES LTD
Approved: Feb 3, 2022 | RLD: No | RS: No | Type: RX